FAERS Safety Report 11336864 (Version 1)
Quarter: 2015Q3

REPORT INFORMATION
  Report Type: Spontaneous
  Country: FR (occurrence: FR)
  Receive Date: 20150804
  Receipt Date: 20150804
  Transmission Date: 20151125
  Serious: Yes (Hospitalization)
  Sender: FDA-Public Use
  Company Number: FR-ASTRAZENECA-2015SE74358

PATIENT
  Age: 33182 Day
  Sex: Female

DRUGS (9)
  1. UVEDOSE [Concomitant]
     Active Substance: CHOLECALCIFEROL
  2. INEXIUM [Suspect]
     Active Substance: ESOMEPRAZOLE
     Route: 048
  3. KESTIN [Concomitant]
     Active Substance: EBASTINE
  4. ZOVIRAX [Concomitant]
     Active Substance: ACYCLOVIR
  5. CARDENSIEL [Concomitant]
     Active Substance: BISOPROLOL FUMARATE
  6. PREVISCAN [Concomitant]
     Active Substance: FLUINDIONE
  7. SERESTA [Concomitant]
     Active Substance: OXAZEPAM
  8. CRESTOR [Concomitant]
     Active Substance: ROSUVASTATIN CALCIUM
  9. LEVOTHYROX [Concomitant]
     Active Substance: LEVOTHYROXINE

REACTIONS (8)
  - Hypotension [Unknown]
  - Hyperthermia [Unknown]
  - Malaise [Unknown]
  - Disturbance in attention [Unknown]
  - Loss of consciousness [Unknown]
  - Asthenia [Unknown]
  - Hyponatraemia [Recovered/Resolved]
  - Dehydration [Unknown]

NARRATIVE: CASE EVENT DATE: 20150704
